FAERS Safety Report 15953184 (Version 1)
Quarter: 2019Q1

REPORT INFORMATION
  Report Type: Report from Study
  Country: None (occurrence: NL)
  Receive Date: 20190212
  Receipt Date: 20190212
  Transmission Date: 20190417
  Serious: Yes (Life-Threatening)
  Sender: FDA-Public Use
  Company Number: NL-ABBVIE-19S-114-2633655-00

PATIENT
  Sex: Male

DRUGS (1)
  1. DUODOPA [Suspect]
     Active Substance: CARBIDOPA\LEVODOPA
     Indication: PARKINSON^S DISEASE
     Dosage: MORNING DOSE: 15.5 ML; CONTINUOUS DOSE 3.4 ML/HR; EXTRA DOSE 2.0 ML.
     Route: 050
     Dates: start: 20170201

REACTIONS (2)
  - Suicidal ideation [Recovered/Resolved]
  - Hospice care [Not Recovered/Not Resolved]
